FAERS Safety Report 8015516-9 (Version None)
Quarter: 2011Q4

REPORT INFORMATION
  Report Type: 
  Country: None (occurrence: None)
  Receive Date: 20111223
  Receipt Date: 20111213
  Transmission Date: 20120403
  Serious: Yes (Other)
  Sender: FDA-Public Use
  Company Number: FK201103007

PATIENT
  Age: 49 Year
  Sex: Male

DRUGS (1)
  1. METHOTREXATE SODIUM [Suspect]
     Indication: PSORIATIC ARTHROPATHY
     Dosage: 10 MG, 1 IN 1 WK

REACTIONS (3)
  - MEDIAL TIBIAL STRESS SYNDROME [None]
  - BLOOD CALCIUM INCREASED [None]
  - BONE MARROW OEDEMA [None]
